FAERS Safety Report 8791237 (Version 1)
Quarter: 2012Q4

REPORT INFORMATION
  Report Type: Spontaneous
  Country: US (occurrence: None)
  Receive Date: 20120914
  Receipt Date: 20120914
  Transmission Date: 20130627
  Serious: No
  Sender: FDA-Public Use
  Company Number: None

PATIENT
  Sex: Female
  Weight: 46.72 kg

DRUGS (1)
  1. BALSALAZIDE DISODIUM [Suspect]

REACTIONS (5)
  - Diarrhoea [None]
  - Abdominal pain upper [None]
  - Dizziness [None]
  - Body temperature increased [None]
  - Decreased appetite [None]
